FAERS Safety Report 4878603-X (Version None)
Quarter: 2006Q1

REPORT INFORMATION
  Report Type: 
  Country: None (occurrence: None)
  Receive Date: 20060110
  Receipt Date: 20060110
  Transmission Date: 20060701
  Serious: Yes (Other)
  Sender: FDA-Public Use
  Company Number: None

PATIENT
  Sex: Male
  Weight: 113.3993 kg

DRUGS (1)
  1. DEPO-MEDROL [Suspect]
     Indication: SPINAL MYELOGRAM
     Dates: start: 19860217, end: 19860217

REACTIONS (2)
  - ARACHNOIDITIS [None]
  - OFF LABEL USE [None]
